FAERS Safety Report 15501173 (Version 1)
Quarter: 2018Q4

REPORT INFORMATION
  Report Type: Report from Study
  Country: US (occurrence: US)
  Receive Date: 20181015
  Receipt Date: 20181015
  Transmission Date: 20190205
  Serious: Yes (Other)
  Sender: FDA-Public Use
  Company Number: US-SHIRE-US201837558

PATIENT
  Sex: Male

DRUGS (3)
  1. VYVANSE [Suspect]
     Active Substance: LISDEXAMFETAMINE DIMESYLATE
     Dosage: 120 MG, 1X/DAY:QD
     Route: 048
     Dates: start: 20180923
  2. VYVANSE [Suspect]
     Active Substance: LISDEXAMFETAMINE DIMESYLATE
     Dosage: 60 MG, 1X/DAY:QD
     Route: 048
     Dates: start: 201805
  3. VYVANSE [Suspect]
     Active Substance: LISDEXAMFETAMINE DIMESYLATE
     Indication: MEMORY IMPAIRMENT
     Dosage: UNK UNK, 1X/DAY:QD
     Route: 048
     Dates: start: 2011, end: 201802

REACTIONS (6)
  - Anger [Not Recovered/Not Resolved]
  - Trance [Unknown]
  - Schizophrenia [Unknown]
  - Disturbance in attention [Unknown]
  - Off label use [Unknown]
  - Delusion [Unknown]

NARRATIVE: CASE EVENT DATE: 2018
